FAERS Safety Report 21801818 (Version 4)
Quarter: 2023Q2

REPORT INFORMATION
  Report Type: Report from Study
  Country: JP (occurrence: JP)
  Receive Date: 20221230
  Receipt Date: 20230609
  Transmission Date: 20230722
  Serious: Yes (Hospitalization)
  Sender: FDA-Public Use
  Company Number: JP-CHUGAI-2022051395

PATIENT
  Age: 73 Year
  Sex: Male
  Weight: 64.5 kg

DRUGS (23)
  1. ATEZOLIZUMAB [Suspect]
     Active Substance: ATEZOLIZUMAB
     Indication: Thymic carcinoma
     Route: 041
     Dates: start: 20221213, end: 20221213
  2. CARBOPLATIN [Suspect]
     Active Substance: CARBOPLATIN
     Indication: Thymic carcinoma
     Route: 042
     Dates: start: 20221213
  3. CARBOPLATIN [Suspect]
     Active Substance: CARBOPLATIN
     Route: 042
     Dates: end: 20221213
  4. PACLITAXEL [Suspect]
     Active Substance: PACLITAXEL
     Indication: Thymic carcinoma
     Route: 042
     Dates: start: 20221213
  5. PACLITAXEL [Suspect]
     Active Substance: PACLITAXEL
     Route: 042
     Dates: end: 20221213
  6. DECADRON [Suspect]
     Active Substance: DEXAMETHASONE
     Indication: Chemotherapy side effect prophylaxis
     Dosage: 4 MILLIGRAM, QD
     Route: 048
     Dates: start: 20221214, end: 20221217
  7. DIGOXIN [Concomitant]
     Active Substance: DIGOXIN
     Indication: Atrial fibrillation
     Dosage: START DATE: BEFORE STARTING THE CLINICAL STUDY, 0.125 MILLIGRAM, QD
     Route: 048
  8. EDOXABAN TOSYLATE [Concomitant]
     Active Substance: EDOXABAN TOSYLATE
     Indication: Atrial fibrillation
     Dosage: START DATE: BEFORE STARTING THE CLINICAL STUDY, 30 MILLIGRAM, QD
     Route: 048
  9. TRESIBA [Concomitant]
     Active Substance: INSULIN DEGLUDEC
     Indication: Type 2 diabetes mellitus
     Dosage: START DATE: BEFORE STARTING THE CLINICAL STUDY, 18 UT, QD
     Route: 058
  10. NOVORAPID [Concomitant]
     Active Substance: INSULIN ASPART
     Indication: Type 2 diabetes mellitus
     Dosage: START DATE: BEFORE STARTING THE CLINICAL STUDY, MORNING: 9UT, NOON: 8UT, EVENING: 6UT
     Route: 058
  11. METFORMIN HYDROCHLORIDE\VILDAGLIPTIN [Concomitant]
     Active Substance: METFORMIN HYDROCHLORIDE\VILDAGLIPTIN
     Indication: Type 2 diabetes mellitus
     Dosage: START DATE: BEFORE STARTING THE CLINICAL STUDY, 1 DOSAGE FORM, BID
     Route: 048
  12. NIFEDIPINE [Concomitant]
     Active Substance: NIFEDIPINE
     Indication: Hypertension
     Dosage: START DATE: BEFORE STARTING THE CLINICAL STUDY, 20 MILLIGRAM, QD
     Route: 048
  13. TELMISARTAN [Concomitant]
     Active Substance: TELMISARTAN
     Indication: Hypertension
     Dosage: START DATE: BEFORE STARTING THE CLINICAL STUDY, 40 MILLIGRAM, BID
     Route: 048
  14. BISOPROLOL FUMARATE [Concomitant]
     Active Substance: BISOPROLOL FUMARATE
     Indication: Atrial fibrillation
     Dosage: START DATE: BEFORE STARTING THE CLINICAL STUDY, 2.5 MILLIGRAM, QD
     Route: 048
  15. METHYLCOBALAMIN [Concomitant]
     Active Substance: METHYLCOBALAMIN
     Indication: Prophylaxis
     Dosage: START DATE: BEFORE STARTING THE CLINICAL STUDY, 500 MICROGRAM, BID
     Route: 048
  16. BEPOTASTINE BESYLATE [Concomitant]
     Active Substance: BEPOTASTINE BESYLATE
     Indication: Rhinitis
     Dosage: START DATE: BEFORE STARTING THE CLINICAL STUDY, 10 MILLIGRAM, BID
     Route: 048
  17. SALEX (JAPAN) [Concomitant]
     Indication: Dermatitis
     Dosage: START DATE: BEFORE STARTING THE CLINICAL STUDY, APPROPRIATE DOSES, BID
     Route: 061
  18. HEPARINOID [Concomitant]
     Indication: Dermatitis
     Dosage: START DATE: BEFORE STARTING THE CLINICAL STUDY, APPROPRIATE DOSES, BID
     Route: 061
  19. CELECOXIB [Concomitant]
     Active Substance: CELECOXIB
     Indication: Spinal stenosis
     Dosage: START DATE: BEFORE STARTING THE CLINICAL STUDY, 100 MILLIGRAM, BID
     Route: 048
  20. CELECOXIB [Concomitant]
     Active Substance: CELECOXIB
     Indication: Spinal osteoarthritis
  21. KETOPROFEN [Concomitant]
     Active Substance: KETOPROFEN
     Indication: Spinal stenosis
     Dosage: START DATE: BEFORE STARTING THE CLINICAL STUDY, APPROPRIATE DOSES, PRN
     Route: 061
  22. KETOPROFEN [Concomitant]
     Active Substance: KETOPROFEN
     Indication: Spinal osteoarthritis
  23. CARBOPLATIN [Concomitant]
     Active Substance: CARBOPLATIN
     Indication: Thymic carcinoma
     Dosage: UNK, ONCE/3WEEKS
     Route: 042
     Dates: start: 20221213

REACTIONS (4)
  - Hyperglycaemia [Recovered/Resolved]
  - COVID-19 [Recovered/Resolved]
  - Febrile neutropenia [Recovered/Resolved]
  - Immobilisation syndrome [Recovered/Resolved]

NARRATIVE: CASE EVENT DATE: 20221216
